FAERS Safety Report 5940244-0 (Version None)
Quarter: 2008Q4

REPORT INFORMATION
  Report Type: 
  Country: None (occurrence: None)
  Receive Date: 20081104
  Receipt Date: 20081028
  Transmission Date: 20090506
  Serious: Yes (Hospitalization)
  Sender: FDA-Public Use
  Company Number: IT-AMGEN-US306981

PATIENT
  Sex: Male

DRUGS (3)
  1. ENBREL [Suspect]
     Indication: PSORIATIC ARTHROPATHY
     Dosage: LYOPHILIZED (50 MG WEEKLY)
     Route: 058
     Dates: start: 20060519
  2. MEDROL [Concomitant]
     Indication: PSORIATIC ARTHROPATHY
     Dosage: 4 MG
     Route: 048
     Dates: start: 20080624
  3. INDOXEN [Concomitant]
     Indication: PSORIATIC ARTHROPATHY
     Dosage: 50 MG
     Route: 054

REACTIONS (2)
  - GASTRIC MUCOSAL LESION [None]
  - HYPERAEMIA [None]
